FAERS Safety Report 7290486-X (Version None)
Quarter: 2011Q1

REPORT INFORMATION
  Report Type: 
  Country: None (occurrence: None)
  Receive Date: 20110214
  Receipt Date: 20110207
  Transmission Date: 20110831
  Serious: No
  Sender: FDA-Public Use
  Company Number: US-PFIZER INC-2006018826

PATIENT
  Sex: Male
  Weight: 25.85 kg

DRUGS (3)
  1. ORAPRED [Concomitant]
     Indication: BRONCHITIS
     Route: 065
  2. ALBUTEROL [Concomitant]
     Indication: BRONCHITIS
     Route: 065
  3. ZITHROMAX [Suspect]
     Dosage: 200 MG, UNK
     Route: 065
     Dates: start: 20050101

REACTIONS (4)
  - URTICARIA [None]
  - RASH [None]
  - BRONCHITIS [None]
  - THROAT TIGHTNESS [None]
